FAERS Safety Report 21188371 (Version 1)
Quarter: 2022Q3

REPORT INFORMATION
  Report Type: Spontaneous
  Country: CA (occurrence: CA)
  Receive Date: 20220809
  Receipt Date: 20220809
  Transmission Date: 20221027
  Serious: Yes (Other)
  Sender: FDA-Public Use
  Company Number: CA-JNJFOC-20220811467

PATIENT
  Age: 25 Year
  Sex: Female
  Weight: 55 kg

DRUGS (5)
  1. REMICADE [Suspect]
     Active Substance: INFLIXIMAB
     Indication: Ankylosing spondylitis
     Route: 041
  2. CELEBREX [Concomitant]
     Active Substance: CELECOXIB
     Indication: Arthralgia
  3. ESOMEPRAZOLE SODIUM [Concomitant]
     Active Substance: ESOMEPRAZOLE SODIUM
  4. IBUPROFEN [Concomitant]
     Active Substance: IBUPROFEN
  5. METHOTREXATE [Concomitant]
     Active Substance: METHOTREXATE

REACTIONS (3)
  - Joint dislocation [Unknown]
  - Intentional product use issue [Unknown]
  - Off label use [Unknown]
